FAERS Safety Report 8356037-3 (Version None)
Quarter: 2012Q2

REPORT INFORMATION
  Report Type: 
  Country: None (occurrence: None)
  Receive Date: 20120511
  Receipt Date: 20120511
  Transmission Date: 20120825
  Serious: Yes (Other)
  Sender: FDA-Public Use
  Company Number: None

PATIENT
  Age: 53 Year
  Sex: Female
  Weight: 86.1834 kg

DRUGS (2)
  1. REMICADE [Suspect]
     Indication: RHEUMATOID ARTHRITIS
     Dosage: REMICADE 3 MG IV BOLUS
     Route: 040
     Dates: start: 20120428, end: 20120428
  2. REMICADE [Suspect]
     Indication: RHEUMATOID ARTHRITIS
     Dosage: REMICADE 3 MG IV BOLUS
     Route: 040
     Dates: start: 20120201, end: 20120201

REACTIONS (9)
  - ORAL DISCOMFORT [None]
  - ORAL MUCOSAL BLISTERING [None]
  - ARTHRALGIA [None]
  - CONDITION AGGRAVATED [None]
  - BURNING SENSATION [None]
  - HYPERHIDROSIS [None]
  - OROPHARYNGEAL PAIN [None]
  - FATIGUE [None]
  - DYSPHAGIA [None]
